FAERS Safety Report 22028886 (Version 1)
Quarter: 2023Q1

REPORT INFORMATION
  Report Type: Other
  Country: JP (occurrence: JP)
  Receive Date: 20230223
  Receipt Date: 20230223
  Transmission Date: 20230417
  Serious: Yes (Other)
  Sender: FDA-Public Use
  Company Number: JP-CHUGAI-2023005361

PATIENT
  Age: 47 Year
  Sex: Female
  Weight: 53.3 kg

DRUGS (3)
  1. ROZLYTREK [Suspect]
     Active Substance: ENTRECTINIB
     Indication: Non-small cell lung cancer
     Dosage: 600 MILLIGRAM, QD
     Route: 048
     Dates: start: 20211006, end: 20211014
  2. ROZLYTREK [Suspect]
     Active Substance: ENTRECTINIB
     Dosage: 400 MILLIGRAM, QD
     Route: 048
     Dates: start: 20211015, end: 20211128
  3. ROZLYTREK [Suspect]
     Active Substance: ENTRECTINIB
     Dosage: 200 MILLIGRAM, QD
     Route: 048
     Dates: start: 20211129, end: 20220117

REACTIONS (7)
  - Renal impairment [Unknown]
  - Taste disorder [Unknown]
  - Hypoaesthesia oral [Unknown]
  - Dizziness [Unknown]
  - Decreased appetite [Unknown]
  - Nausea [Unknown]
  - Dyspnoea [Unknown]

NARRATIVE: CASE EVENT DATE: 20211014
